FAERS Safety Report 25936638 (Version 1)
Quarter: 2025Q4

REPORT INFORMATION
  Report Type: Spontaneous
  Country: US (occurrence: None)
  Receive Date: 20251017
  Receipt Date: 20251017
  Transmission Date: 20260118
  Serious: Yes (Hospitalization)
  Sender: FDA-CTU
  Company Number: None

PATIENT
  Age: 76 Year
  Sex: Female

DRUGS (1)
  1. KISUNLA [Suspect]
     Active Substance: DONANEMAB-AZBT
     Indication: Cognitive disorder
     Route: 042

REACTIONS (6)
  - Infusion related reaction [None]
  - Back pain [None]
  - Dyspnoea [None]
  - Chills [None]
  - Blood pressure increased [None]
  - Hypoxia [None]

NARRATIVE: CASE EVENT DATE: 20251016
